FAERS Safety Report 21633797 (Version 1)
Quarter: 2022Q4

REPORT INFORMATION
  Report Type: Spontaneous
  Country: US (occurrence: US)
  Receive Date: 20221123
  Receipt Date: 20221123
  Transmission Date: 20230112
  Serious: No
  Sender: FDA-Public Use
  Company Number: US-SA-SAC20221121000203

PATIENT
  Sex: Female

DRUGS (2)
  1. DUPIXENT [Suspect]
     Active Substance: DUPILUMAB
     Dosage: UNK UNK, 1X
     Route: 065
     Dates: start: 20221007, end: 20221007
  2. DUPIXENT [Suspect]
     Active Substance: DUPILUMAB
     Dosage: SUBSEQUENT DOSES
     Dates: start: 20221021

REACTIONS (2)
  - Tachycardia [Unknown]
  - Swelling of eyelid [Unknown]
